FAERS Safety Report 25876005 (Version 1)
Quarter: 2025Q4

REPORT INFORMATION
  Report Type: Spontaneous
  Country: EU (occurrence: EU)
  Receive Date: 20251003
  Receipt Date: 20251003
  Transmission Date: 20260119
  Serious: Yes (Other)
  Sender: SANDOZ
  Company Number: EU-NOVPHSZ-PHHY2019IT060817

PATIENT
  Age: 72 Year
  Sex: Male

DRUGS (6)
  1. BEVACIZUMAB [Suspect]
     Active Substance: BEVACIZUMAB
     Indication: Adenocarcinoma of colon
     Dosage: 7.5 MG/KG, ,EVERY 21 D
     Route: 065
     Dates: start: 200811
  2. BEVACIZUMAB [Suspect]
     Active Substance: BEVACIZUMAB
     Indication: Metastases to lung
  3. CAPECITABINE [Suspect]
     Active Substance: CAPECITABINE
     Indication: Adenocarcinoma of colon
     Dosage: 1000 MG/M2, 2X/DAY (DAYS 1-14, EIGHT  COURSES(6 MONTHS))
     Route: 065
     Dates: start: 200811
  4. CAPECITABINE [Suspect]
     Active Substance: CAPECITABINE
     Indication: Metastases to lung
  5. OXALIPLATIN [Suspect]
     Active Substance: OXALIPLATIN
     Indication: Metastases to lung
     Dosage: 130 MG/M2, UNK (EIGHT COURSES (6  MONTHS))
     Route: 065
     Dates: start: 200811
  6. OXALIPLATIN [Suspect]
     Active Substance: OXALIPLATIN
     Indication: Adenocarcinoma of colon

REACTIONS (4)
  - Palmar-plantar erythrodysaesthesia syndrome [Unknown]
  - Neuropathy peripheral [Unknown]
  - Thrombocytopenia [Unknown]
  - Hypertension [Recovering/Resolving]
